FAERS Safety Report 8184174-5 (Version None)
Quarter: 2012Q1

REPORT INFORMATION
  Report Type: 
  Country: None (occurrence: None)
  Receive Date: 20120305
  Receipt Date: 20120227
  Transmission Date: 20120608
  Serious: Yes (Other)
  Sender: FDA-Public Use
  Company Number: US-FRI-1000028745

PATIENT
  Sex: Female
  Weight: 101.8 kg

DRUGS (6)
  1. NORVASC [Suspect]
     Indication: HYPERTENSION
     Dosage: 5 MG
     Route: 048
  2. NORVASC [Suspect]
     Indication: CARDIAC DISORDER
  3. TOPAMAX [Concomitant]
     Indication: CONVULSION
  4. BYSTOLIC [Suspect]
     Indication: HYPERTENSION
     Dosage: 5 MG
     Route: 048
     Dates: start: 20110525, end: 20110501
  5. DIGOXIN [Concomitant]
     Indication: CARDIAC DISORDER
  6. PHENOBARBITAL TAB [Concomitant]
     Indication: CONVULSION

REACTIONS (7)
  - OEDEMA PERIPHERAL [None]
  - UNEVALUABLE EVENT [None]
  - PULMONARY OEDEMA [None]
  - ABDOMINAL DISTENSION [None]
  - OEDEMA [None]
  - COUGH [None]
  - CARDIAC FAILURE CONGESTIVE [None]
